FAERS Safety Report 6696582-X (Version None)
Quarter: 2010Q2

REPORT INFORMATION
  Report Type: 
  Country: None (occurrence: None)
  Receive Date: 20100426
  Receipt Date: 20100414
  Transmission Date: 20101027
  Serious: Yes (Hospitalization, Other)
  Sender: FDA-Public Use
  Company Number: JP-JNJFOC-20100203612

PATIENT
  Sex: Male

DRUGS (10)
  1. TOPIRAMATE [Suspect]
     Indication: EPILEPSY
     Route: 048
  2. TOPIRAMATE [Suspect]
     Route: 048
  3. TOPIRAMATE [Suspect]
     Route: 048
  4. TOPIRAMATE [Suspect]
     Route: 048
  5. TOPIRAMATE [Suspect]
     Route: 048
  6. TOPIRAMATE [Suspect]
     Route: 048
  7. CARBAMAZEPINE [Concomitant]
     Route: 048
  8. MYSTAN [Concomitant]
     Route: 048
  9. ACETAZOLAMIDE [Concomitant]
     Route: 048
  10. DIAZEPAM [Concomitant]
     Route: 048

REACTIONS (4)
  - INFLUENZA [None]
  - PHARYNGITIS [None]
  - PROTEIN URINE PRESENT [None]
  - STATUS EPILEPTICUS [None]
